FAERS Safety Report 4279596-9 (Version None)
Quarter: 2004Q1

REPORT INFORMATION
  Report Type: 
  Country: None (occurrence: None)
  Receive Date: 20040123
  Receipt Date: 20031219
  Transmission Date: 20041129
  Serious: Yes (Hospitalization)
  Sender: FDA-Public Use
  Company Number: RB-392-2003

PATIENT
  Age: 27 Year

DRUGS (1)
  1. BUPRENORPHINE HYDROCHLORIDE [Suspect]

REACTIONS (8)
  - ARTHRITIS [None]
  - FUNDOSCOPY ABNORMAL [None]
  - LYMPHADENOPATHY [None]
  - SKIN CANDIDA [None]
  - SKIN NODULE [None]
  - SUBCUTANEOUS ABSCESS [None]
  - TREATMENT NONCOMPLIANCE [None]
  - VISUAL ACUITY REDUCED [None]
